FAERS Safety Report 8562809-2 (Version None)
Quarter: 2012Q3

REPORT INFORMATION
  Report Type: 
  Country: None (occurrence: None)
  Receive Date: 20120802
  Receipt Date: 20120717
  Transmission Date: 20120928
  Serious: No
  Sender: FDA-Public Use
  Company Number: US-AMGEN-USASP2012044556

PATIENT
  Age: 46 Year
  Sex: Male

DRUGS (1)
  1. ENBREL [Suspect]
     Indication: PSORIATIC ARTHROPATHY
     Dosage: 50 MG, 2 TIMES/WK
     Dates: start: 20120101

REACTIONS (6)
  - TENDERNESS [None]
  - FURUNCLE [None]
  - FEELING HOT [None]
  - SKIN ULCER [None]
  - PAIN [None]
  - ERYTHEMA [None]
